FAERS Safety Report 5055735-7 (Version None)
Quarter: 2006Q3

REPORT INFORMATION
  Report Type: 
  Country: None (occurrence: None)
  Receive Date: 20060713
  Receipt Date: 20060703
  Transmission Date: 20061208
  Serious: Yes (Hospitalization, Other)
  Sender: FDA-Public Use
  Company Number: HQWYE190805JAN06

PATIENT
  Age: 60 Year
  Sex: Female
  Weight: 89.89 kg

DRUGS (5)
  1. PREMPRO [Suspect]
  2. CYCRIN [Suspect]
  3. ESTROPIPATE [Suspect]
  4. MEDROXYPROGESTERONE ACETATE [Suspect]
  5. PROVERA [Suspect]

REACTIONS (4)
  - BREAST CANCER METASTATIC [None]
  - METASTASES TO LYMPH NODES [None]
  - OESTROGEN RECEPTOR ASSAY POSITIVE [None]
  - PROGESTERONE RECEPTOR ASSAY POSITIVE [None]
